FAERS Safety Report 18717554 (Version 1)
Quarter: 2021Q1

REPORT INFORMATION
  Report Type: Spontaneous
  Country: US (occurrence: US)
  Receive Date: 20210107
  Receipt Date: 20210107
  Transmission Date: 20210419
  Serious: No
  Sender: FDA-Public Use
  Company Number: None

PATIENT
  Age: 20 Year
  Sex: Male

DRUGS (1)
  1. RISPERIDONE (RISPERIDONE 3MG TAB) [Suspect]
     Active Substance: RISPERIDONE
     Indication: SCHIZOAFFECTIVE DISORDER
     Route: 048
     Dates: start: 20200207, end: 20200210

REACTIONS (6)
  - Extrapyramidal disorder [None]
  - Tardive dyskinesia [None]
  - Swollen tongue [None]
  - Dyspnoea [None]
  - Respiratory distress [None]
  - Dystonia [None]

NARRATIVE: CASE EVENT DATE: 20200208
